FAERS Safety Report 24081035 (Version 1)
Quarter: 2024Q3

REPORT INFORMATION
  Report Type: Spontaneous
  Country: US (occurrence: US)
  Receive Date: 20240711
  Receipt Date: 20240711
  Transmission Date: 20241016
  Serious: No
  Sender: JOURNEY MEDICAL CORPORATION
  Company Number: US-JOURNEY MEDICAL CORPORATION-2024JNY00044

PATIENT
  Sex: Female
  Weight: 77.111 kg

DRUGS (6)
  1. ZILXI [Suspect]
     Active Substance: MINOCYCLINE HYDROCHLORIDE
     Indication: Rosacea
     Dosage: UNK UNK, 3X/WEEK
     Route: 061
  2. SOOLANTRA [Concomitant]
     Active Substance: IVERMECTIN
     Indication: Rosacea
     Dosage: UNK, 1X/DAY
     Route: 061
  3. SOLIFENACIN [Concomitant]
     Active Substance: SOLIFENACIN
     Dosage: 5 MG, 1X/DAY
  4. VITAMIN D3 [Concomitant]
     Active Substance: CHOLECALCIFEROL
  5. TRETINOIN [Concomitant]
     Active Substance: TRETINOIN
     Route: 061
  6. ANASTROZOLE [Concomitant]
     Active Substance: ANASTROZOLE
     Dosage: 1 MG, 1X/DAY

REACTIONS (1)
  - Skin weeping [Recovered/Resolved]

NARRATIVE: CASE EVENT DATE: 20230101
